FAERS Safety Report 9782317 (Version 1)
Quarter: 2013Q4

REPORT INFORMATION
  Report Type: Spontaneous
  Country: FR (occurrence: FR)
  Receive Date: 20131226
  Receipt Date: 20131226
  Transmission Date: 20140711
  Serious: Yes (Hospitalization, Other)
  Sender: FDA-Public Use
  Company Number: FR-ELI_LILLY_AND_COMPANY-FR201312006606

PATIENT
  Age: 66 Year
  Sex: Male

DRUGS (2)
  1. ZYPREXA [Suspect]
     Indication: BIPOLAR I DISORDER
     Dosage: 1 DF, UNKNOWN
     Route: 048
     Dates: end: 201307
  2. TAHOR [Suspect]
     Indication: HYPERCHOLESTEROLAEMIA
     Dosage: 20 MG, QD
     Route: 048
     Dates: start: 2010, end: 201307

REACTIONS (5)
  - Renal failure [Unknown]
  - Rhabdomyolysis [Unknown]
  - Fall [Unknown]
  - Pyrexia [Unknown]
  - Lung disorder [Unknown]
